FAERS Safety Report 13922692 (Version 1)
Quarter: 2017Q3

REPORT INFORMATION
  Report Type: Spontaneous
  Country: US (occurrence: US)
  Receive Date: 20170830
  Receipt Date: 20170830
  Transmission Date: 20171127
  Serious: Yes (Hospitalization)
  Sender: FDA-Public Use
  Company Number: US-BAUSCH-BL-2017-025302

PATIENT
  Age: 54 Year
  Sex: Female

DRUGS (3)
  1. DILTIAZEM HYDROCHLORIDE. [Suspect]
     Active Substance: DILTIAZEM HYDROCHLORIDE
     Indication: HYPERTENSION
     Dosage: DAILY
     Route: 048
     Dates: start: 199607, end: 19970313
  2. DIGITALIS [Concomitant]
     Active Substance: DIGITALIS
     Indication: PRODUCT USED FOR UNKNOWN INDICATION
     Dates: start: 199608, end: 19970313
  3. BETAXOLOL. [Concomitant]
     Active Substance: BETAXOLOL
     Indication: PRODUCT USED FOR UNKNOWN INDICATION
     Dates: start: 199304, end: 199607

REACTIONS (11)
  - Headache [Recovered/Resolved]
  - Palpitations [Recovered/Resolved]
  - Gingival bleeding [Recovered/Resolved]
  - Tremor [Recovering/Resolving]
  - Agitation [Recovered/Resolved]
  - Weight decreased [Recovered/Resolved]
  - Panic attack [Recovered/Resolved]
  - Tinnitus [Recovered/Resolved]
  - Depression [Recovered/Resolved]
  - Nervousness [Recovered/Resolved]
  - Decreased appetite [Recovered/Resolved]

NARRATIVE: CASE EVENT DATE: 19960802
